FAERS Safety Report 15760117 (Version 1)
Quarter: 2018Q4

REPORT INFORMATION
  Report Type: Spontaneous
  Country: US (occurrence: US)
  Receive Date: 20181206
  Receipt Date: 20181206
  Transmission Date: 20190205
  Serious: Yes (Hospitalization)
  Sender: FDA-Public Use
  Company Number: None

PATIENT
  Age: 62 Year
  Sex: Male
  Weight: 102.51 kg

DRUGS (1)
  1. SAXAGLIPTIN [Suspect]
     Active Substance: SAXAGLIPTIN
     Indication: DIABETES MELLITUS
     Route: 048
     Dates: start: 20150310, end: 20150511

REACTIONS (7)
  - Diarrhoea [None]
  - Pancreatitis [None]
  - Abdominal pain upper [None]
  - Lipase increased [None]
  - Nausea [None]
  - Refusal of treatment by patient [None]
  - Amylase increased [None]

NARRATIVE: CASE EVENT DATE: 20150411
